FAERS Safety Report 21118604 (Version 1)
Quarter: 2022Q3

REPORT INFORMATION
  Report Type: Report from Study
  Country: US (occurrence: None)
  Receive Date: 20220722
  Receipt Date: 20220722
  Transmission Date: 20221027
  Serious: Yes (Hospitalization)
  Sender: FDA-Public Use
  Company Number: US-Merck Healthcare KGaA-9337592

PATIENT
  Sex: Male

DRUGS (2)
  1. MAVENCLAD [Suspect]
     Active Substance: CLADRIBINE
     Indication: Multiple sclerosis
     Dosage: YEAR ONE THERAPY
     Route: 048
     Dates: start: 20210106, end: 20210206
  2. MAVENCLAD [Suspect]
     Active Substance: CLADRIBINE
     Dosage: YEAR TWO THERAPY
     Route: 048
     Dates: end: 20220220

REACTIONS (3)
  - Loss of consciousness [Unknown]
  - Somnolence [Unknown]
  - Sunburn [Unknown]
